FAERS Safety Report 13104011 (Version 4)
Quarter: 2017Q2

REPORT INFORMATION
  Report Type: Spontaneous
  Country: US (occurrence: US)
  Receive Date: 20170111
  Receipt Date: 20170620
  Transmission Date: 20170830
  Serious: Yes (Congenital Anomaly, Other)
  Sender: FDA-Public Use
  Company Number: PHEH2016US034218

PATIENT
  Sex: Male

DRUGS (4)
  1. ONDANSETRON TEVA [Suspect]
     Active Substance: ONDANSETRON
     Indication: FOETAL EXPOSURE DURING PREGNANCY
     Dosage: MOTHER DOSE: 4 MG, Q8H
     Route: 064
  2. ONDANSETRON AUROBINDO [Suspect]
     Active Substance: ONDANSETRON HYDROCHLORIDE
     Indication: FOETAL EXPOSURE DURING PREGNANCY
     Dosage: MOTHER DOSE: 4 MG, Q4H
     Route: 064
  3. ZOFRAN [Suspect]
     Active Substance: ONDANSETRON HYDROCHLORIDE
     Indication: FOETAL EXPOSURE DURING PREGNANCY
     Dosage: MOTHER DOSE: 04 MG, UNK
     Route: 064
  4. ONDANSETRONE RANBAXY [Suspect]
     Active Substance: ONDANSETRON HYDROCHLORIDE
     Indication: FOETAL EXPOSURE DURING PREGNANCY
     Dosage: MOTHER DOSE: 08 MG, Q8H
     Route: 064

REACTIONS (15)
  - Injury [Unknown]
  - Cardiac murmur [Unknown]
  - Laevocardia [Unknown]
  - Atrial septal defect [Unknown]
  - Selective eating disorder [Unknown]
  - Nasal congestion [Unknown]
  - Hyperbilirubinaemia neonatal [Unknown]
  - Anxiety [Unknown]
  - Rhinorrhoea [Unknown]
  - Weight increased [Unknown]
  - Haemorrhage neonatal [Unknown]
  - Foetal exposure during pregnancy [Unknown]
  - Jaundice neonatal [Unknown]
  - Contusion [Unknown]
  - Urinary tract infection [Unknown]
